FAERS Safety Report 4381605-3 (Version None)
Quarter: 2004Q2

REPORT INFORMATION
  Report Type: 
  Country: None (occurrence: None)
  Receive Date: 20040614
  Receipt Date: 20040121
  Transmission Date: 20050107
  Serious: Yes (Other)
  Sender: FDA-Public Use
  Company Number: 2004193305US

PATIENT

DRUGS (1)
  1. LINEZOLID (LINEZOLID) TABLET [Suspect]
     Indication: OSTEOMYELITIS
     Dosage: 600 MG, BID, ORAL
     Route: 048

REACTIONS (1)
  - PANCYTOPENIA [None]
